FAERS Safety Report 20257418 (Version 1)
Quarter: 2021Q4

REPORT INFORMATION
  Report Type: Spontaneous
  Country: AR (occurrence: AR)
  Receive Date: 20211230
  Receipt Date: 20211230
  Transmission Date: 20220303
  Serious: Yes (Other)
  Sender: FDA-Public Use
  Company Number: AR-PFIZER INC-2021233929

PATIENT
  Age: 8 Year
  Sex: Male

DRUGS (1)
  1. GENOTROPIN [Suspect]
     Active Substance: SOMATROPIN
     Indication: Hypopituitarism
     Dosage: 1 TO 1.4 MG, DAILY (7 PER WEEK)
     Dates: start: 20200803

REACTIONS (4)
  - Device use issue [Unknown]
  - Injury associated with device [Unknown]
  - Administration site pain [Unknown]
  - Device issue [Unknown]

NARRATIVE: CASE EVENT DATE: 20210301
